FAERS Safety Report 18453318 (Version 1)
Quarter: 2020Q4

REPORT INFORMATION
  Report Type: Spontaneous
  Country: DE (occurrence: DE)
  Receive Date: 20201102
  Receipt Date: 20201102
  Transmission Date: 20210114
  Serious: Yes (Other)
  Sender: FDA-Public Use
  Company Number: DE-JNJFOC-20201041368

PATIENT
  Age: 40 Year
  Sex: Female

DRUGS (5)
  1. TRIAM [Concomitant]
  2. XARELTO [Suspect]
     Active Substance: RIVAROXABAN
     Indication: ANTICOAGULANT THERAPY
     Dosage: 20 MG, QD
     Route: 048
  3. XARELTO [Suspect]
     Active Substance: RIVAROXABAN
     Indication: DEEP VEIN THROMBOSIS
     Dosage: 20 MG, QD
     Route: 048
  4. ARIXTRA [Concomitant]
     Active Substance: FONDAPARINUX SODIUM
  5. XARELTO [Suspect]
     Active Substance: RIVAROXABAN
     Indication: PULMONARY EMBOLISM
     Dosage: 20 MG, QD
     Route: 048
     Dates: start: 201810

REACTIONS (22)
  - Dyspepsia [Unknown]
  - Impaired healing [Unknown]
  - Fatigue [Unknown]
  - Acne [Recovering/Resolving]
  - Epistaxis [Unknown]
  - Heart rate increased [Unknown]
  - Headache [Unknown]
  - Menorrhagia [Unknown]
  - Dizziness [Unknown]
  - Pain [Unknown]
  - Deep vein thrombosis [Unknown]
  - Vulvovaginal inflammation [Unknown]
  - Night sweats [Unknown]
  - Pulmonary embolism [Unknown]
  - Metrorrhagia [Unknown]
  - Confusional state [Unknown]
  - Inappropriate schedule of product administration [Unknown]
  - Skin odour abnormal [Recovering/Resolving]
  - Hypertension [Unknown]
  - Hot flush [Unknown]
  - Vomiting [Unknown]
  - Anal haemorrhage [Unknown]
